FAERS Safety Report 6595171-5 (Version None)
Quarter: 2010Q1

REPORT INFORMATION
  Report Type: 
  Country: None (occurrence: None)
  Receive Date: 20100222
  Receipt Date: 20100215
  Transmission Date: 20100710
  Serious: Yes (Other)
  Sender: FDA-Public Use
  Company Number: NO-MERCK-1002NOR00013

PATIENT
  Age: 83 Year
  Sex: Male

DRUGS (3)
  1. ZOCOR [Suspect]
     Route: 048
  2. IBUMETIN [Suspect]
     Route: 048
  3. SELEXID (AMDINOCILLIN PIVOXIL HYDROCHLORIDE) [Suspect]
     Route: 048

REACTIONS (4)
  - ARTHRALGIA [None]
  - MYALGIA [None]
  - RENAL FAILURE [None]
  - RHABDOMYOLYSIS [None]
